FAERS Safety Report 10449093 (Version 1)
Quarter: 2014Q3

REPORT INFORMATION
  Report Type: Other
  Country: GB (occurrence: GB)
  Receive Date: 20140912
  Receipt Date: 20140912
  Transmission Date: 20150326
  Serious: Yes (Hospitalization)
  Sender: FDA-Public Use
  Company Number: GB-LUPIN PHARMACEUTICALS INC.-E2B_00002410

PATIENT
  Age: 71 Year
  Sex: Female
  Weight: 69 kg

DRUGS (11)
  1. ASPIRIN. [Concomitant]
     Active Substance: ASPIRIN
     Indication: PRODUCT USED FOR UNKNOWN INDICATION
     Route: 065
  2. DOXAZOCIN [Concomitant]
     Active Substance: DOXAZOSIN MESYLATE
     Indication: PRODUCT USED FOR UNKNOWN INDICATION
     Route: 065
  3. LANSOPRAZOLE. [Concomitant]
     Active Substance: LANSOPRAZOLE
     Indication: PRODUCT USED FOR UNKNOWN INDICATION
     Route: 065
  4. ALLOPURINOL. [Concomitant]
     Active Substance: ALLOPURINOL
     Indication: PRODUCT USED FOR UNKNOWN INDICATION
     Route: 065
  5. SIMVASTATIN. [Suspect]
     Active Substance: SIMVASTATIN
     Indication: PRODUCT USED FOR UNKNOWN INDICATION
     Route: 048
     Dates: end: 20140723
  6. ATENOLOL. [Concomitant]
     Active Substance: ATENOLOL
     Indication: PRODUCT USED FOR UNKNOWN INDICATION
     Route: 065
  7. LEVOTHYROXINE [Concomitant]
     Active Substance: LEVOTHYROXINE
     Indication: PRODUCT USED FOR UNKNOWN INDICATION
     Route: 065
  8. PERINDOPRIL ERBUMINE. [Concomitant]
     Active Substance: PERINDOPRIL ERBUMINE
     Indication: PRODUCT USED FOR UNKNOWN INDICATION
     Route: 065
  9. PIOGLITAZONE [Concomitant]
     Active Substance: PIOGLITAZONE
     Indication: PRODUCT USED FOR UNKNOWN INDICATION
     Route: 065
  10. SOLIFENACIN [Concomitant]
     Active Substance: SOLIFENACIN
     Indication: PRODUCT USED FOR UNKNOWN INDICATION
     Route: 065
  11. METFORMIN [Concomitant]
     Active Substance: METFORMIN HYDROCHLORIDE
     Indication: PRODUCT USED FOR UNKNOWN INDICATION
     Route: 065

REACTIONS (2)
  - Rhabdomyolysis [Unknown]
  - Pain in extremity [Unknown]

NARRATIVE: CASE EVENT DATE: 20140721
